FAERS Safety Report 8353603-6 (Version None)
Quarter: 2012Q2

REPORT INFORMATION
  Report Type: 
  Country: None (occurrence: None)
  Receive Date: 20120511
  Receipt Date: 20110722
  Transmission Date: 20120825
  Serious: No
  Sender: FDA-Public Use
  Company Number: US-GLAXOSMITHKLINE-A0938012A

PATIENT
  Age: 62 Year
  Sex: Female

DRUGS (11)
  1. MORPHINE [Concomitant]
  2. IMODIUM [Concomitant]
  3. LISINOPRIL [Concomitant]
  4. FLUTICASONE FUROATE [Concomitant]
  5. HYDROXYZINE HCL [Concomitant]
  6. FUROSEMIDE [Concomitant]
  7. FEMARA [Concomitant]
  8. CARVEDILOL [Concomitant]
  9. BENZONATATE [Concomitant]
  10. TYKERB [Suspect]
     Indication: BREAST CANCER
     Dosage: 2500MG PER DAY
     Route: 048
     Dates: start: 20110711
  11. ONDANSETRON [Concomitant]

REACTIONS (3)
  - NAUSEA [None]
  - FATIGUE [None]
  - DISEASE PROGRESSION [None]
